FAERS Safety Report 5987140-0 (Version None)
Quarter: 2008Q4

REPORT INFORMATION
  Report Type: 
  Country: None (occurrence: None)
  Receive Date: 20081203
  Receipt Date: 20081119
  Transmission Date: 20090506
  Serious: Yes (Life-Threatening, Hospitalization, Other)
  Sender: FDA-Public Use
  Company Number: 2008AL012040

PATIENT
  Age: 81 Year
  Sex: Male

DRUGS (2)
  1. SPIRONOLACTONE [Suspect]
     Indication: BLOOD PRESSURE INCREASED
     Dosage: 25 MG;UNK;PO
     Route: 048
     Dates: start: 20071127
  2. IRBESARTAN [Concomitant]

REACTIONS (2)
  - BLOOD POTASSIUM INCREASED [None]
  - RENAL FAILURE ACUTE [None]
